FAERS Safety Report 10343127 (Version 1)
Quarter: 2014Q3

REPORT INFORMATION
  Report Type: Report from Study
  Country: US (occurrence: US)
  Receive Date: 20140725
  Receipt Date: 20140725
  Transmission Date: 20150326
  Serious: Yes (Death, Hospitalization)
  Sender: FDA-Public Use
  Company Number: US-JNJFOC-20140716345

PATIENT
  Sex: Male
  Weight: 78 kg

DRUGS (25)
  1. ZYLOPRIM [Concomitant]
     Active Substance: ALLOPURINOL
  2. FERROUS SULFATE [Concomitant]
     Active Substance: FERROUS SULFATE\FERROUS SULFATE, DRIED
  3. FUROSEMIDE. [Concomitant]
     Active Substance: FUROSEMIDE
  4. IMBRUVICA [Suspect]
     Active Substance: IBRUTINIB
     Indication: PRODUCT USED FOR UNKNOWN INDICATION
     Route: 048
     Dates: start: 201405
  5. MUCINEX [Concomitant]
     Active Substance: GUAIFENESIN
  6. SENNA [Concomitant]
     Active Substance: SENNA LEAF\SENNOSIDES\SENNOSIDES A AND B
  7. WARFARIN [Concomitant]
     Active Substance: WARFARIN
  8. METFORMIN [Concomitant]
     Active Substance: METFORMIN HYDROCHLORIDE
  9. LOPRESSOR [Concomitant]
     Active Substance: METOPROLOL TARTRATE
  10. ECOTRIN [Concomitant]
     Active Substance: ASPIRIN
  11. PROBIOTIC [Concomitant]
     Active Substance: PROBIOTICS NOS
  12. TYLENOL [Concomitant]
     Active Substance: ACETAMINOPHEN
  13. CALCIUM [Concomitant]
     Active Substance: CALCIUM
  14. OTHER RESPIRATORY SYSTEM PRODUCTS [Concomitant]
  15. LEVAQUIN [Concomitant]
     Active Substance: LEVOFLOXACIN
  16. GENTAMICIN [Concomitant]
     Active Substance: GENTAMICIN
  17. PRINIVIL [Concomitant]
     Active Substance: LISINOPRIL
  18. BACTRIM [Concomitant]
     Active Substance: SULFAMETHOXAZOLE\TRIMETHOPRIM
  19. ZETIA [Concomitant]
     Active Substance: EZETIMIBE
  20. ZOVIRAX [Concomitant]
     Active Substance: ACYCLOVIR
  21. MELATONIN [Concomitant]
     Active Substance: MELATONIN
  22. DUONEB [Concomitant]
     Active Substance: ALBUTEROL SULFATE\IPRATROPIUM BROMIDE
  23. CORDARONE [Concomitant]
     Active Substance: AMIODARONE HYDROCHLORIDE
  24. PHENERGAN W/ CODEINE [Concomitant]
     Active Substance: CODEINE PHOSPHATE\PROMETHAZINE HYDROCHLORIDE
  25. PULMICORT TURBUHALER [Concomitant]
     Active Substance: BUDESONIDE

REACTIONS (2)
  - Inappropriate schedule of drug administration [Unknown]
  - Cardio-respiratory arrest [Fatal]

NARRATIVE: CASE EVENT DATE: 2014
